FAERS Safety Report 8839476 (Version 1)
Quarter: 2012Q4

REPORT INFORMATION
  Report Type: Spontaneous
  Country: US (occurrence: None)
  Receive Date: 20121011
  Receipt Date: 20121011
  Transmission Date: 20130627
  Serious: Yes (Other)
  Sender: FDA-Public Use
  Company Number: None

PATIENT
  Age: 25 Year
  Sex: Female
  Weight: 145.15 kg

DRUGS (1)
  1. DEPO-PROVERA [Suspect]

REACTIONS (4)
  - Colitis ulcerative [None]
  - Anaemia [None]
  - Weight decreased [None]
  - Unevaluable event [None]
